FAERS Safety Report 9773220 (Version 1)
Quarter: 2013Q4

REPORT INFORMATION
  Report Type: Spontaneous
  Country: US (occurrence: US)
  Receive Date: 20131219
  Receipt Date: 20131219
  Transmission Date: 20140711
  Serious: Yes (Other)
  Sender: FDA-Public Use
  Company Number: US-VIIV HEALTHCARE LIMITED-A1053575A

PATIENT
  Age: 67 Year
  Sex: Male

DRUGS (6)
  1. SELZENTRY [Suspect]
     Dates: start: 201311
  2. TIVICAY [Suspect]
     Dates: start: 201311
  3. COMPLERA [Suspect]
     Dates: start: 201311
  4. CREON [Concomitant]
  5. ACYCLOVIR [Concomitant]
  6. LISINOPRIL [Concomitant]

REACTIONS (3)
  - Hepatitis B [Unknown]
  - Aspartate aminotransferase increased [Unknown]
  - Alanine aminotransferase increased [Unknown]
